FAERS Safety Report 8242893-6 (Version None)
Quarter: 2012Q1

REPORT INFORMATION
  Report Type: 
  Country: None (occurrence: None)
  Receive Date: 20120329
  Receipt Date: 20120326
  Transmission Date: 20120608
  Serious: Yes (Other)
  Sender: FDA-Public Use
  Company Number: JP-PFIZER INC-2012077627

PATIENT
  Age: 61 Year
  Sex: Female

DRUGS (2)
  1. LYRICA [Suspect]
     Indication: NEURALGIA
     Dosage: 25 MG, 3X/DAY
     Route: 048
     Dates: start: 20120323, end: 20120326
  2. MEXITIL [Concomitant]
     Dosage: 100 MG/DAY
     Route: 048
     Dates: end: 20120326

REACTIONS (2)
  - HYPERTENSION [None]
  - HOT FLUSH [None]
